FAERS Safety Report 10456327 (Version 4)
Quarter: 2015Q2

REPORT INFORMATION
  Report Type: Report from Study
  Country: US (occurrence: US)
  Receive Date: 20140916
  Receipt Date: 20150615
  Transmission Date: 20150821
  Serious: Yes (Hospitalization)
  Sender: FDA-Public Use
  Company Number: US-JNJFOC-20140909733

PATIENT
  Age: 8 Year
  Sex: Male
  Weight: 20.2 kg

DRUGS (7)
  1. BUDESONIDE. [Concomitant]
     Active Substance: BUDESONIDE
     Route: 065
  2. LEUKINE [Concomitant]
     Active Substance: SARGRAMOSTIM
     Route: 065
     Dates: start: 20131211, end: 20140206
  3. HYDROCORTISONE W/PRAMOXINE [Concomitant]
     Route: 065
  4. REMICADE [Suspect]
     Active Substance: INFLIXIMAB
     Indication: INFLAMMATORY BOWEL DISEASE
     Route: 042
     Dates: start: 201003
  5. UCERIS [Concomitant]
     Active Substance: BUDESONIDE
     Route: 065
  6. MULTIVITAMINS [Concomitant]
     Active Substance: VITAMINS
     Route: 065
  7. FERROUS SULFATE [Concomitant]
     Active Substance: FERROUS SULFATE\FERROUS SULFATE, DRIED
     Route: 065

REACTIONS (1)
  - Inflammatory bowel disease [Recovered/Resolved with Sequelae]

NARRATIVE: CASE EVENT DATE: 20140310
